FAERS Safety Report 6983667-3 (Version None)
Quarter: 2010Q3

REPORT INFORMATION
  Report Type: 
  Country: None (occurrence: None)
  Receive Date: 20100914
  Receipt Date: 20081121
  Transmission Date: 20110219
  Serious: Yes (Other)
  Sender: FDA-Public Use
  Company Number: US-WYE-H06937408

PATIENT
  Sex: Male

DRUGS (3)
  1. TYGACIL [Suspect]
     Indication: PYREXIA
     Dosage: 100 MG X1 THEN 50 MG EVERY 12 HOURS
     Route: 042
     Dates: start: 20081117
  2. ENOXAPARIN SODIUM [Concomitant]
  3. DARBEPOETIN ALFA [Concomitant]
     Indication: PLATELET COUNT DECREASED

REACTIONS (2)
  - BLOOD ALKALINE PHOSPHATASE INCREASED [None]
  - BLOOD BILIRUBIN INCREASED [None]
